FAERS Safety Report 15196645 (Version 6)
Quarter: 2018Q3

REPORT INFORMATION
  Report Type: Spontaneous
  Country: PL (occurrence: PL)
  Receive Date: 20180725
  Receipt Date: 20180910
  Transmission Date: 20181010
  Serious: Yes (Life-Threatening, Hospitalization)
  Sender: FDA-Public Use
  Company Number: PL-CELGENEUS-POL-20180706283

PATIENT
  Age: 69 Year
  Sex: Male
  Weight: 63 kg

DRUGS (3)
  1. DARATUMUMAB [Concomitant]
     Active Substance: DARATUMUMAB
     Indication: PLASMA CELL MYELOMA RECURRENT
     Dosage: 1008 MILLIGRAM
     Route: 041
     Dates: start: 20150130, end: 20180615
  2. DEXAMETHASONE. [Suspect]
     Active Substance: DEXAMETHASONE
     Indication: PLASMA CELL MYELOMA RECURRENT
     Dosage: 20 MILLIGRAM
     Route: 041
     Dates: start: 20150130, end: 20180615
  3. REVLIMID [Suspect]
     Active Substance: LENALIDOMIDE
     Indication: PLASMA CELL MYELOMA RECURRENT
     Dosage: 10 MILLIGRAM
     Route: 048
     Dates: start: 20150130, end: 20180621

REACTIONS (1)
  - Bronchitis [Recovered/Resolved]

NARRATIVE: CASE EVENT DATE: 20180621
